FAERS Safety Report 7157312-0 (Version None)
Quarter: 2010Q4

REPORT INFORMATION
  Report Type: 
  Country: None (occurrence: None)
  Receive Date: 20101214
  Receipt Date: 20101124
  Transmission Date: 20110411
  Serious: No
  Sender: FDA-Public Use
  Company Number: US-PFIZER INC-US-WYE-H18319410

PATIENT
  Age: 58 Year
  Sex: Male
  Weight: 83.9 kg

DRUGS (4)
  1. ADVIL [Suspect]
     Dosage: 1-2 GEL CAPLETS AS NEEDED
     Route: 048
     Dates: start: 20101001, end: 20101001
  2. CALCIUM CITRATE [Concomitant]
  3. VITAMIN D [Concomitant]
  4. MULTI-VITAMINS [Concomitant]

REACTIONS (1)
  - DRUG EFFECT DECREASED [None]
